FAERS Safety Report 9911496 (Version 2)
Quarter: 2014Q1

REPORT INFORMATION
  Report Type: Spontaneous
  Country: US (occurrence: US)
  Receive Date: 20140219
  Receipt Date: 20140219
  Transmission Date: 20141002
  Serious: Yes (Other)
  Sender: FDA-Public Use
  Company Number: PHEH2014US001255

PATIENT
  Sex: Male

DRUGS (2)
  1. GLEEVEC [Suspect]
     Dosage: 400 MG, PER DAY
  2. LEVOTHYROXINE [Concomitant]
     Dosage: UNK UKN, UNK

REACTIONS (4)
  - Angioedema [Unknown]
  - Respiratory disorder [Unknown]
  - Rash [Unknown]
  - Swelling [Unknown]
